FAERS Safety Report 23633414 (Version 1)
Quarter: 2024Q1

REPORT INFORMATION
  Report Type: Spontaneous
  Country: US (occurrence: None)
  Receive Date: 20240314
  Receipt Date: 20240314
  Transmission Date: 20240409
  Serious: Yes (Other)
  Sender: FDA-Public Use
  Company Number: None

PATIENT
  Age: 43 Year
  Sex: Female

DRUGS (4)
  1. ADDERALL [Suspect]
     Active Substance: AMPHETAMINE ASPARTATE\AMPHETAMINE SULFATE\DEXTROAMPHETAMINE SACCHARATE\DEXTROAMPHETAMINE SULFATE
     Indication: Obstructive sleep apnoea syndrome
     Dosage: FREQUENCY : TWICE A DAY;?
     Route: 048
  2. TYLENOL [Concomitant]
  3. ASPIRIN [Concomitant]
  4. PROZAC [Concomitant]

REACTIONS (3)
  - Exposure during pregnancy [None]
  - Failed induction of labour [None]
  - Caesarean section [None]

NARRATIVE: CASE EVENT DATE: 20240212
